FAERS Safety Report 14281281 (Version 6)
Quarter: 2018Q2

REPORT INFORMATION
  Report Type: Spontaneous
  Country: GR (occurrence: GR)
  Receive Date: 20171213
  Receipt Date: 20180406
  Transmission Date: 20180711
  Serious: Yes (Other)
  Sender: FDA-Public Use
  Company Number: GR-ASTRAZENECA-2017SF25111

PATIENT
  Age: 62 Year
  Sex: Female

DRUGS (45)
  1. EVEROLIMUS. [Suspect]
     Active Substance: EVEROLIMUS
     Indication: BREAST CANCER FEMALE
     Dosage: 1 DF, QD COMBINATION WITH TRASTZUMAB AND EXEMESTANE
     Route: 065
     Dates: start: 2009
  2. LAPATINIB [Suspect]
     Active Substance: LAPATINIB
     Indication: METASTATIC MALIGNANT MELANOMA
     Dosage: 1 DF, QD COMBINATION WITH CAPECITABINE
     Route: 065
     Dates: start: 2009
  3. LAPATINIB [Suspect]
     Active Substance: LAPATINIB
     Indication: BREAST CANCER METASTATIC
     Dosage: 1 DF, QD COMBINATION WITH CAPECITABINE
     Route: 065
     Dates: start: 2009
  4. TRASTUZUMAB. [Suspect]
     Active Substance: TRASTUZUMAB
     Indication: BREAST CANCER METASTATIC
     Dosage: 1 DF, QD COMBINATION WITH ERIBULIN
     Route: 065
     Dates: start: 2009
  5. TAMOXIFEN CITRATE. [Suspect]
     Active Substance: TAMOXIFEN CITRATE
     Indication: BREAST CANCER METASTATIC
     Dosage: 1-EVERY CYCLE, REGIMEN#1, COMBINATION WITH TRASTUZUMAB
     Route: 048
     Dates: start: 2009
  6. CAPECITABINE. [Suspect]
     Active Substance: CAPECITABINE
     Indication: BREAST CANCER METASTATIC
     Dosage: 1 DF, QD COMBINATION WITH TRASTUZUMAB
     Route: 065
     Dates: start: 2009
  7. DOXORUBICIN HYDROCHLORIDE. [Suspect]
     Active Substance: DOXORUBICIN HYDROCHLORIDE
     Indication: RECURRENT CANCER
     Dosage: 1 DF, QD COMBINATION WITH TRASTUZUMAB
     Route: 065
     Dates: start: 2009
  8. FLUOROURACIL. [Suspect]
     Active Substance: FLUOROURACIL
     Indication: BREAST CANCER METASTATIC
     Dosage: 1-EVERY CYCLE, REGIMEN
     Route: 065
     Dates: start: 2006
  9. TRASTUZUMAB. [Suspect]
     Active Substance: TRASTUZUMAB
     Indication: BREAST CANCER METASTATIC
     Dosage: 1 DF, QD COMBINATION WITH FULVESTRANT
     Route: 065
     Dates: start: 2009
  10. CAPECITABINE. [Suspect]
     Active Substance: CAPECITABINE
     Indication: BREAST CANCER METASTATIC
     Dosage: 1 DF, QD COMBINATION WITH LAPATINIB
     Route: 065
     Dates: start: 2009
  11. DOCETAXEL. [Suspect]
     Active Substance: DOCETAXEL
     Indication: BREAST CANCER METASTATIC
     Dosage: 1 - EVERY CYCLE, REGIMEN#1
     Route: 065
     Dates: start: 2009
  12. DOXORUBICIN HYDROCHLORIDE. [Suspect]
     Active Substance: DOXORUBICIN HYDROCHLORIDE
     Indication: RECURRENT CANCER
     Dosage: 1 - EVERY CYCLE, REGIMEN#1, COMBINATION WITH TRASTUZUMAB
     Route: 065
     Dates: start: 2009
  13. EVEROLIMUS. [Suspect]
     Active Substance: EVEROLIMUS
     Indication: BREAST CANCER METASTATIC
     Dosage: 1 DF, QD COMBINATION WITH TRASTZUMAB AND EXEMESTANE
     Route: 065
     Dates: start: 2009
  14. TRASTUZUMAB. [Suspect]
     Active Substance: TRASTUZUMAB
     Indication: BREAST CANCER METASTATIC
     Dosage: 1 DF, QD COMBINATION WITH TAMOXIFEN
     Route: 065
     Dates: start: 2009
  15. FULVESTRANT. [Suspect]
     Active Substance: FULVESTRANT
     Indication: BREAST CANCER METASTATIC
     Dosage: 1 DF, QD COMBINATION WITH TRASTUZUMAB
     Route: 030
     Dates: start: 2009
  16. CAPECITABINE. [Suspect]
     Active Substance: CAPECITABINE
     Indication: BREAST CANCER METASTATIC
     Dosage: 1 DF, QD COMBINATION WITH TRASTUZUMAB
     Route: 065
     Dates: start: 2009
  17. CYCLOPHOSPHAMIDE. [Suspect]
     Active Substance: CYCLOPHOSPHAMIDE
     Indication: BREAST CANCER METASTATIC
     Route: 065
  18. DOXORUBICIN HYDROCHLORIDE. [Suspect]
     Active Substance: DOXORUBICIN HYDROCHLORIDE
     Indication: BREAST CANCER METASTATIC
     Dosage: 1 - EVERY CYCLE, REGIMEN#1, COMBINATION WITH TRASTUZUMAB
     Route: 065
     Dates: start: 2009
  19. EXEMESTANE. [Suspect]
     Active Substance: EXEMESTANE
     Indication: BREAST CANCER METASTATIC
     Dosage: COMBINATION WITH TRASTZUMAB AND EVEROLIMUS, 1- EVERY CYCLE
     Route: 065
     Dates: start: 2009
  20. EXEMESTANE. [Suspect]
     Active Substance: EXEMESTANE
     Indication: RECURRENT CANCER
     Dosage: COMBINATION WITH TRASTZUMAB AND EVEROLIMUS, 1- EVERY CYCLE
     Route: 065
     Dates: start: 2009
  21. LAPATINIB [Suspect]
     Active Substance: LAPATINIB
     Indication: BREAST CANCER METASTATIC
     Dosage: 1 DF, QD COMBINATION WITH CAPECITABINE
     Route: 065
     Dates: start: 2009
  22. TRASTUZUMAB. [Suspect]
     Active Substance: TRASTUZUMAB
     Indication: BREAST CANCER METASTATIC
     Dosage: 1 DF, QD COMBINATION WITH LIPOSOMAL DOXORUBICIN HCL
     Route: 065
     Dates: start: 2009
  23. ENDOXAN [Suspect]
     Active Substance: CYCLOPHOSPHAMIDE
     Indication: BREAST CANCER METASTATIC
     Dosage: 1 - EVERY CYCLE REGIMEN 1
     Route: 065
     Dates: start: 2006
  24. FULVESTRANT. [Suspect]
     Active Substance: FULVESTRANT
     Indication: BREAST CANCER METASTATIC
     Dosage: 1 DF, QD COMBINATION WITH TRASTUZUMAB
     Route: 030
     Dates: start: 2009
  25. CARBOPLATIN. [Suspect]
     Active Substance: CARBOPLATIN
     Indication: BREAST CANCER METASTATIC
     Dosage: 1 - EVERY CYCLE, COMBINATION WITH TRASTUZUMAB AND GEMCITABINE
     Route: 065
     Dates: start: 2009
  26. CARBOPLATIN. [Suspect]
     Active Substance: CARBOPLATIN
     Indication: BREAST CANCER METASTATIC
     Dosage: 1 - EVERY CYCLE, COMBINATION WITH TRASTUZUMAB AND GEMCITABINE
     Route: 065
     Dates: start: 2009
  27. DOXORUBICIN HYDROCHLORIDE. [Suspect]
     Active Substance: DOXORUBICIN HYDROCHLORIDE
     Indication: BREAST CANCER METASTATIC
     Dosage: 1 DF, QD COMBINATION WITH TRASTUZUMAB
     Route: 065
     Dates: start: 2009
  28. ERIBULIN [Suspect]
     Active Substance: ERIBULIN
     Indication: RECURRENT CANCER
     Dosage: 1 DF, QD COMBINATION WITH TRASTUZUMAB
     Route: 065
     Dates: start: 2009
  29. VINORELBINE [Suspect]
     Active Substance: VINORELBINE\VINORELBINE TARTRATE
     Indication: RECURRENT CANCER
     Dosage: 1 DF, QD COMBINATION WITH TRASTUZUMAB
     Route: 065
     Dates: start: 2009
  30. EVEROLIMUS. [Suspect]
     Active Substance: EVEROLIMUS
     Indication: PROPHYLAXIS AGAINST TRANSPLANT REJECTION
     Dosage: 1 DF, QD COMBINATION WITH TRASTZUMAB AND EXEMESTANE
     Route: 065
     Dates: start: 2009
  31. TRASTUZUMAB. [Suspect]
     Active Substance: TRASTUZUMAB
     Indication: BREAST CANCER METASTATIC
     Dosage: 1 DF, QD COMBINATION WITH VINORELBINE
     Route: 065
     Dates: start: 2009
  32. TAMOXIFEN CITRATE. [Suspect]
     Active Substance: TAMOXIFEN CITRATE
     Indication: RECURRENT CANCER
     Dosage: 1-EVERY CYCLE, REGIMEN#1, COMBINATION WITH TRASTUZUMAB
     Route: 048
     Dates: start: 2009
  33. PACLITAXEL. [Suspect]
     Active Substance: PACLITAXEL
     Indication: BREAST CANCER METASTATIC
     Dosage: 1 - EVERY CYCLE,  REGIMEN#1
     Route: 065
     Dates: start: 2006
  34. TRASTUZUMAB. [Suspect]
     Active Substance: TRASTUZUMAB
     Indication: BREAST CANCER METASTATIC
     Dosage: 1-EVERY CYCLE, REGIMEN 1
     Route: 065
     Dates: start: 2009
  35. TRASTUZUMAB. [Suspect]
     Active Substance: TRASTUZUMAB
     Indication: BREAST CANCER METASTATIC
     Dosage: 1 DF, QD COMBINATION WITH EXEMESTANE AND EVEROLIMUS
     Route: 065
     Dates: start: 2009
  36. VINORELBINE [Suspect]
     Active Substance: VINORELBINE\VINORELBINE TARTRATE
     Indication: BREAST CANCER METASTATIC
     Dosage: 1 DF, QD COMBINATION WITH TRASTUZUMAB
     Route: 065
     Dates: start: 2009
  37. CAPECITABINE. [Suspect]
     Active Substance: CAPECITABINE
     Indication: BREAST CANCER METASTATIC
     Dosage: 1 DF, QD COMBINATION WITH LAPATINIB
     Route: 065
     Dates: start: 2009
  38. DOCETAXEL. [Suspect]
     Active Substance: DOCETAXEL
     Indication: BREAST CANCER METASTATIC
     Dosage: 1 - EVERY CYCLE, REGIMEN#1
     Route: 065
     Dates: start: 2009
  39. EPIRUBICIN HYDROCHLORIDE. [Suspect]
     Active Substance: EPIRUBICIN HYDROCHLORIDE
     Indication: BREAST CANCER METASTATIC
     Dosage: 1 - EVERY CYCLE, REGIMEN 1
     Route: 065
     Dates: start: 2006
  40. ERIBULIN [Suspect]
     Active Substance: ERIBULIN
     Indication: BREAST CANCER METASTATIC
     Dosage: 1 DF, QD COMBINATION WITH TRASTUZUMAB
     Route: 065
     Dates: start: 2009
  41. GEMCITABINE HYDROCHLORIDE. [Suspect]
     Active Substance: GEMCITABINE HYDROCHLORIDE
     Indication: BREAST CANCER METASTATIC
     Dosage: 1 DF, QD,  COMBINATION WITH TRASTUZUMAB AND CARBOPLATIN
     Route: 065
     Dates: start: 2009
  42. METHOTREXATE SODIUM. [Suspect]
     Active Substance: METHOTREXATE SODIUM
     Indication: BREAST CANCER METASTATIC
     Route: 065
     Dates: start: 2006
  43. TRASTUZUMAB. [Suspect]
     Active Substance: TRASTUZUMAB
     Indication: BREAST CANCER METASTATIC
     Dosage: 1 DF, QD COMBINATION WITH CAPECITABINE
     Route: 065
     Dates: start: 2009
  44. TRASTUZUMAB. [Suspect]
     Active Substance: TRASTUZUMAB
     Indication: BREAST CANCER METASTATIC
     Dosage: 1 DF, QD COMBINATION WITH GEMCITABINE AND CARBOPLATIN
     Route: 065
     Dates: start: 2009
  45. TRASTUZUMAB. [Suspect]
     Active Substance: TRASTUZUMAB
     Indication: BREAST CANCER METASTATIC
     Dosage: 1 - EVERY CYCLE, REGIMEN 1
     Route: 065
     Dates: start: 2009

REACTIONS (8)
  - Metastases to skin [Unknown]
  - Skin mass [Unknown]
  - Metastases to lung [Unknown]
  - Malignant neoplasm progression [Unknown]
  - Metastases to lymph nodes [Unknown]
  - Recurrent cancer [Unknown]
  - Metastases to bone [Unknown]
  - Oestrogen receptor positive breast cancer [Unknown]

NARRATIVE: CASE EVENT DATE: 2009
